FAERS Safety Report 23905539 (Version 2)
Quarter: 2024Q2

REPORT INFORMATION
  Report Type: Spontaneous
  Country: US (occurrence: US)
  Receive Date: 20240527
  Receipt Date: 20240603
  Transmission Date: 20240716
  Serious: Yes (Other)
  Sender: FDA-Public Use
  Company Number: US-ALCON LABORATORIES-ALC2024US002629

PATIENT
  Age: 59 Year
  Sex: Female

DRUGS (9)
  1. BSS [Suspect]
     Active Substance: CALCIUM CHLORIDE\MAGNESIUM CHLORIDE\POTASSIUM CHLORIDE\SODIUM ACETATE\SODIUM CHLORIDE\SODIUM CITRATE
     Indication: Product used for unknown indication
     Dosage: UNK
     Route: 031
     Dates: start: 20240104
  2. CHONDROITIN SULFATE SODIUM NOS\HYALURONATE SODIUM [Suspect]
     Active Substance: CHONDROITIN SULFATE SODIUM NOS\HYALURONATE SODIUM
     Indication: Product used for unknown indication
     Dosage: UNK
     Route: 065
     Dates: start: 20240104
  3. EPINEPHRINE [Suspect]
     Active Substance: EPINEPHRINE
     Indication: Product used for unknown indication
     Dosage: UNK
     Route: 031
     Dates: start: 20240104
  4. OFLOXACIN [Suspect]
     Active Substance: OFLOXACIN
     Indication: Preoperative care
     Dosage: 0.3% GTT
     Route: 065
  5. POVIDONE-IODINE [Suspect]
     Active Substance: POVIDONE-IODINE
     Indication: Preoperative care
     Dosage: UNK
     Route: 047
     Dates: start: 20240104
  6. OFLOXACIN [Concomitant]
     Active Substance: OFLOXACIN
     Indication: Postoperative care
     Dosage: UNK,QID
     Route: 065
  7. POVIDONE-IODINE [Concomitant]
     Active Substance: POVIDONE-IODINE
     Indication: Product used for unknown indication
     Dosage: UNK
     Route: 065
  8. PREDNISOLONE ACETATE [Concomitant]
     Active Substance: PREDNISOLONE ACETATE
     Indication: Postoperative care
     Dosage: UNK, AS DIRECTED
     Route: 065
  9. PROLENSA [Concomitant]
     Active Substance: BROMFENAC SODIUM
     Indication: Postoperative care
     Dosage: UNK, DAILY
     Route: 065

REACTIONS (2)
  - Endophthalmitis [Recovered/Resolved]
  - Wrong technique in product usage process [Unknown]

NARRATIVE: CASE EVENT DATE: 20240122
